FAERS Safety Report 24229464 (Version 1)
Quarter: 2024Q3

REPORT INFORMATION
  Report Type: Spontaneous
  Country: US (occurrence: None)
  Receive Date: 20240819
  Receipt Date: 20240819
  Transmission Date: 20241016
  Serious: Yes (Hospitalization)
  Sender: Public
  Company Number: None

PATIENT
  Sex: Female

DRUGS (4)
  1. OPSUMIT [Suspect]
     Active Substance: MACITENTAN
     Indication: Pulmonary arterial hypertension
     Dosage: FREQUENCY : DAILY;?
     Route: 048
     Dates: start: 202406
  2. REMODULIN [Concomitant]
  3. REMODULIN MDV (PAP] [Concomitant]
  4. ADCIRCA (PAP) [Concomitant]

REACTIONS (3)
  - Vascular device infection [None]
  - Staphylococcal infection [None]
  - Blister [None]
